FAERS Safety Report 7595951-3 (Version None)
Quarter: 2011Q3

REPORT INFORMATION
  Report Type: 
  Country: None (occurrence: None)
  Receive Date: 20110707
  Receipt Date: 20110624
  Transmission Date: 20111222
  Serious: Yes (Other)
  Sender: FDA-Public Use
  Company Number: PHHY2011JP52757

PATIENT
  Age: 65 Year
  Sex: Male

DRUGS (1)
  1. TEGRETOL [Suspect]
     Indication: STATUS EPILEPTICUS
     Dosage: UNK UKN, UNK
     Route: 048

REACTIONS (1)
  - NO ADVERSE EVENT [None]
